FAERS Safety Report 16235747 (Version 1)
Quarter: 2019Q2

REPORT INFORMATION
  Report Type: Spontaneous
  Country: US (occurrence: US)
  Receive Date: 20190424
  Receipt Date: 20190424
  Transmission Date: 20190711
  Serious: No
  Sender: FDA-Public Use
  Company Number: US-ASTRAZENECA-2019SE49364

PATIENT
  Sex: Female
  Weight: 68.9 kg

DRUGS (1)
  1. BYDUREON [Suspect]
     Active Substance: EXENATIDE
     Indication: DIABETES MELLITUS
     Route: 058
     Dates: start: 201902, end: 201903

REACTIONS (2)
  - Gait disturbance [Recovered/Resolved]
  - Injection site mass [Recovered/Resolved]
